FAERS Safety Report 13329112 (Version 1)
Quarter: 2017Q1

REPORT INFORMATION
  Report Type: Spontaneous
  Country: US (occurrence: US)
  Receive Date: 20170310
  Receipt Date: 20170310
  Transmission Date: 20170428
  Serious: Yes (Death)
  Sender: FDA-Public Use
  Company Number: None

PATIENT
  Age: 80 Year
  Sex: Male

DRUGS (1)
  1. SILDENAFIL TAB 20MG [Suspect]
     Active Substance: SILDENAFIL
     Indication: TYPE 2 DIABETES MELLITUS
     Route: 048
     Dates: start: 20160825, end: 20170223

REACTIONS (1)
  - Death [None]

NARRATIVE: CASE EVENT DATE: 20170223
